FAERS Safety Report 10080672 (Version 2)
Quarter: 2014Q2

REPORT INFORMATION
  Report Type: Report from Study
  Country: US (occurrence: US)
  Receive Date: 20140416
  Receipt Date: 20140416
  Transmission Date: 20141212
  Serious: Yes (Other)
  Sender: FDA-Public Use
  Company Number: US-ROCHE-1366384

PATIENT
  Age: 80 Year
  Sex: Female
  Weight: 94.89 kg

DRUGS (2)
  1. AVASTIN [Suspect]
     Indication: GLIOBLASTOMA
     Route: 042
  2. AVASTIN [Suspect]
     Route: 042

REACTIONS (3)
  - Fall [Unknown]
  - Peripheral swelling [Not Recovered/Not Resolved]
  - Haemorrhage [Recovering/Resolving]
